FAERS Safety Report 4966959-9 (Version None)
Quarter: 2006Q2

REPORT INFORMATION
  Report Type: 
  Country: None (occurrence: None)
  Receive Date: 20060403
  Receipt Date: 20060323
  Transmission Date: 20061013
  Serious: Yes (Hospitalization, Other)
  Sender: FDA-Public Use
  Company Number: 24206-1

PATIENT
  Age: 63 Year
  Sex: Male
  Weight: 104 kg

DRUGS (1)
  1. DACARBAZINE FOR INJ. 200 MG - BEDFORD LABS, INC. [Suspect]
     Indication: METASTATIC MALIGNANT MELANOMA
     Dosage: 2150-2240 MG/IV
     Route: 042
     Dates: start: 20050809, end: 20051122

REACTIONS (3)
  - DEHYDRATION [None]
  - MENTAL DISORDER [None]
  - SINUSITIS [None]
